FAERS Safety Report 8310039-1 (Version None)
Quarter: 2012Q2

REPORT INFORMATION
  Report Type: 
  Country: None (occurrence: None)
  Receive Date: 20120425
  Receipt Date: 20120420
  Transmission Date: 20120825
  Serious: Yes (Other)
  Sender: FDA-Public Use
  Company Number: TH-BAYER-2012-035274

PATIENT
  Age: 40 Year
  Sex: Male

DRUGS (1)
  1. NEXAVAR [Suspect]
     Indication: HEPATIC NEOPLASM MALIGNANT
     Dosage: UNK
     Route: 048
     Dates: end: 20120401

REACTIONS (2)
  - LYMPHADENOPATHY [None]
  - ASCITES [None]
